FAERS Safety Report 7629588-4 (Version None)
Quarter: 2011Q3

REPORT INFORMATION
  Report Type: 
  Country: None (occurrence: None)
  Receive Date: 20110722
  Receipt Date: 20110712
  Transmission Date: 20111222
  Serious: Yes (Hospitalization, Other)
  Sender: FDA-Public Use
  Company Number: US-ROCHE-691754

PATIENT
  Sex: Male
  Weight: 59 kg

DRUGS (1)
  1. ACCUTANE [Suspect]
     Indication: ACNE
     Route: 048
     Dates: start: 20080201, end: 20080229

REACTIONS (5)
  - APHTHOUS STOMATITIS [None]
  - COLITIS [None]
  - INFLAMMATORY BOWEL DISEASE [None]
  - HAEMATOCHEZIA [None]
  - BLOOD ALKALINE PHOSPHATASE INCREASED [None]
